FAERS Safety Report 12131661 (Version 2)
Quarter: 2016Q1

REPORT INFORMATION
  Report Type: Report from Study
  Country: IL (occurrence: IL)
  Receive Date: 20160301
  Receipt Date: 20160308
  Transmission Date: 20160526
  Serious: Yes (Death)
  Sender: FDA-Public Use
  Company Number: IL-ABBVIE-16P-082-1568082-00

PATIENT
  Sex: Male

DRUGS (1)
  1. DUODOPA [Suspect]
     Active Substance: CARBIDOPA\LEVODOPA
     Indication: PARKINSON^S DISEASE
     Route: 050
     Dates: start: 20150622

REACTIONS (6)
  - Cardiac arrest [Fatal]
  - Abdominal pain [Unknown]
  - Apnoea [Fatal]
  - Pneumonia aspiration [Fatal]
  - Vomiting [Fatal]
  - Choking [Fatal]
